FAERS Safety Report 5176421-9 (Version None)
Quarter: 2006Q4

REPORT INFORMATION
  Report Type: 
  Country: None (occurrence: None)
  Receive Date: 20061207
  Receipt Date: 20061201
  Transmission Date: 20070319
  Serious: Yes (Disabling, Congenital Anomaly)
  Sender: FDA-Public Use
  Company Number: 2006SP005832

PATIENT
  Age: 1 Day
  Sex: Male
  Weight: 3.89 kg

DRUGS (2)
  1. AERIUS (DESLORATADINE) (DESLORATADINE) [Suspect]
     Indication: DRUG USE FOR UNKNOWN INDICATION
     Dosage: 5 MG;QD; TRPL
     Route: 064
     Dates: end: 20040916
  2. ZOMIG [Suspect]
     Indication: DRUG USE FOR UNKNOWN INDICATION
     Dosage: 2 DF; UNKNOWN; TRPL
     Route: 064
     Dates: end: 20040815

REACTIONS (4)
  - CAESAREAN SECTION [None]
  - CONGENITAL ARTERIAL MALFORMATION [None]
  - DRUG EXPOSURE DURING PREGNANCY [None]
  - PULMONARY MALFORMATION [None]
